FAERS Safety Report 21049770 (Version 3)
Quarter: 2022Q3

REPORT INFORMATION
  Report Type: Spontaneous
  Country: US (occurrence: US)
  Receive Date: 20220706
  Receipt Date: 20220802
  Transmission Date: 20221027
  Serious: No
  Sender: FDA-Public Use
  Company Number: US-PFIZER INC-PV202200011652

PATIENT
  Age: 43 Year
  Sex: Male
  Weight: 116.1 kg

DRUGS (2)
  1. XELJANZ [Suspect]
     Active Substance: TOFACITINIB CITRATE
     Indication: Psoriatic arthropathy
     Dosage: 5 MG, 2X/DAY
     Route: 048
     Dates: start: 202006
  2. XELJANZ [Suspect]
     Active Substance: TOFACITINIB CITRATE
     Indication: Polyarthritis

REACTIONS (6)
  - Therapeutic product effect incomplete [Unknown]
  - Alanine aminotransferase increased [Recovering/Resolving]
  - Aspartate aminotransferase increased [Unknown]
  - Psoriasis [Unknown]
  - Liver function test increased [Unknown]
  - Infection [Unknown]

NARRATIVE: CASE EVENT DATE: 20210401
